FAERS Safety Report 24527499 (Version 10)
Quarter: 2025Q2

REPORT INFORMATION
  Report Type: Report from Study
  Country: CO (occurrence: CO)
  Receive Date: 20241021
  Receipt Date: 20250603
  Transmission Date: 20250716
  Serious: Yes (Other)
  Sender: TAKEDA
  Company Number: CO-TAKEDA-2024TUS073862

PATIENT
  Age: 52 Year
  Sex: Female
  Weight: 82 kg

DRUGS (1)
  1. VEDOLIZUMAB [Suspect]
     Active Substance: VEDOLIZUMAB
     Indication: Colitis ulcerative

REACTIONS (24)
  - Colitis ulcerative [Unknown]
  - Depressed mood [Recovered/Resolved]
  - Somnolence [Recovered/Resolved]
  - Muscular weakness [Recovered/Resolved]
  - Body height increased [Unknown]
  - Genital tract inflammation [Unknown]
  - Gastrointestinal inflammation [Unknown]
  - Feeling cold [Recovered/Resolved]
  - Weight increased [Unknown]
  - Menopause [Unknown]
  - Visual impairment [Unknown]
  - Adnexa uteri pain [Unknown]
  - Polymenorrhoea [Unknown]
  - Gastrointestinal pain [Unknown]
  - Frequent bowel movements [Unknown]
  - Osteoarthritis [Unknown]
  - Treatment noncompliance [Unknown]
  - Toothache [Unknown]
  - Limb injury [Unknown]
  - Abdominal pain [Recovered/Resolved]
  - Dizziness [Unknown]
  - Asthenia [Unknown]
  - Abdominal distension [Unknown]
  - Headache [Recovered/Resolved]

NARRATIVE: CASE EVENT DATE: 20240716
